FAERS Safety Report 21761043 (Version 2)
Quarter: 2022Q4

REPORT INFORMATION
  Report Type: Spontaneous
  Country: AU (occurrence: AU)
  Receive Date: 20221221
  Receipt Date: 20221224
  Transmission Date: 20230113
  Serious: No
  Sender: FDA-Public Use
  Company Number: AU-MYLANLABS-2022M1140854

PATIENT
  Sex: Female

DRUGS (2)
  1. ISOPTIN [Suspect]
     Active Substance: VERAPAMIL HYDROCHLORIDE
     Indication: Product used for unknown indication
     Dosage: 40 MILLIGRAM, BID (80 MG HALF TABLET, TWICE DAILY)
     Route: 065
  2. VERAPAMIL HYDROCHLORIDE [Suspect]
     Active Substance: VERAPAMIL HYDROCHLORIDE
     Indication: Product used for unknown indication
     Dosage: 20 MILLIGRAM, BID (40MG 1/2 A TAB TWICE DAILY)
     Route: 065

REACTIONS (4)
  - Sleep disorder [Unknown]
  - Disorientation [Unknown]
  - Fatigue [Unknown]
  - Headache [Unknown]
